FAERS Safety Report 21935044 (Version 1)
Quarter: 2023Q1

REPORT INFORMATION
  Report Type: Report from Study
  Country: US (occurrence: None)
  Receive Date: 20230201
  Receipt Date: 20230201
  Transmission Date: 20230418
  Serious: Yes (Other)
  Sender: FDA-Public Use
  Company Number: 2023A023643

PATIENT
  Age: 768 Month
  Sex: Female
  Weight: 43.1 kg

DRUGS (9)
  1. TAGRISSO [Suspect]
     Active Substance: OSIMERTINIB
     Indication: Metastases to lung
     Route: 048
     Dates: start: 20220911
  2. TAGRISSO [Suspect]
     Active Substance: OSIMERTINIB
     Indication: Cervix carcinoma
     Route: 048
     Dates: start: 20220911
  3. LENVIMA [Concomitant]
     Active Substance: LENVATINIB
  4. CAPECITABINE [Concomitant]
     Active Substance: CAPECITABINE
  5. ABIRATERONE ACETATE [Concomitant]
     Active Substance: ABIRATERONE ACETATE
  6. VITAMIN C [Concomitant]
     Active Substance: ASCORBIC ACID
  7. VITAMIN D3 [Concomitant]
     Active Substance: CHOLECALCIFEROL
  8. ASPIRIN [Concomitant]
     Active Substance: ASPIRIN
  9. THALOMID [Concomitant]
     Active Substance: THALIDOMIDE

REACTIONS (1)
  - Peripheral swelling [Unknown]

NARRATIVE: CASE EVENT DATE: 20221201
